FAERS Safety Report 4667336-0 (Version None)
Quarter: 2005Q2

REPORT INFORMATION
  Report Type: 
  Country: None (occurrence: None)
  Receive Date: 20050519
  Receipt Date: 20050519
  Transmission Date: 20051028
  Serious: Yes (Hospitalization)
  Sender: FDA-Public Use
  Company Number: None

PATIENT
  Age: 58 Year
  Sex: Female
  Weight: 102 kg

DRUGS (7)
  1. RAPTIVA [Suspect]
     Indication: PSORIASIS
     Dosage: 12.5 MG SQ
     Route: 058
  2. PREDNISONE [Concomitant]
  3. GLUCOPHAGE [Concomitant]
  4. GLYBURIDE [Concomitant]
  5. PROZAC [Concomitant]
  6. LISINOPRIL [Concomitant]
  7. ENBREL [Concomitant]

REACTIONS (3)
  - CONTUSION [None]
  - FACTOR VIII INHIBITION [None]
  - PROTHROMBIN TIME PROLONGED [None]
